FAERS Safety Report 7530850-4 (Version None)
Quarter: 2011Q2

REPORT INFORMATION
  Report Type: 
  Country: None (occurrence: None)
  Receive Date: 20110608
  Receipt Date: 20110526
  Transmission Date: 20111010
  Serious: Yes (Other)
  Sender: FDA-Public Use
  Company Number: CA-PAR PHARMACEUTICAL, INC-2011SCPR003016

PATIENT
  Age: 74 Year
  Sex: Male

DRUGS (1)
  1. METRONIDAZOLE [Suspect]
     Indication: OSTEOMYELITIS
     Dosage: UNK, UNKNOWN
     Route: 065

REACTIONS (4)
  - HYPOAESTHESIA [None]
  - POLYNEUROPATHY [None]
  - TOXIC ENCEPHALOPATHY [None]
  - ATAXIA [None]
